FAERS Safety Report 4579474-1 (Version None)
Quarter: 2005Q1

REPORT INFORMATION
  Report Type: 
  Country: None (occurrence: None)
  Receive Date: 20050210
  Receipt Date: 20050210
  Transmission Date: 20050727
  Serious: Yes (Death)
  Sender: FDA-Public Use
  Company Number: None

PATIENT
  Sex: Male
  Weight: 105.91 kg

DRUGS (4)
  1. INTERFERON-ALPHA [Suspect]
     Dosage: 9.0 MU SC 3X/WEEK. CYCLE = 4 WEEKS
     Route: 058
     Dates: start: 20040726
  2. ASPIRIN [Concomitant]
  3. GLUCOPHAGE [Concomitant]
  4. LASIX [Concomitant]

REACTIONS (2)
  - ASTHENIA [None]
  - DYSPNOEA EXACERBATED [None]
